FAERS Safety Report 16378806 (Version 1)
Quarter: 2019Q2

REPORT INFORMATION
  Report Type: Spontaneous
  Country: US (occurrence: US)
  Receive Date: 20190531
  Receipt Date: 20190531
  Transmission Date: 20190711
  Serious: No
  Sender: FDA-Public Use
  Company Number: US-TEVA-2019-US-1058813

PATIENT
  Sex: Female

DRUGS (1)
  1. LIDOCAINE PATCH 5% [Suspect]
     Active Substance: LIDOCAINE
     Dosage: PATCHES
     Route: 065

REACTIONS (1)
  - Herpes zoster [Unknown]
